FAERS Safety Report 8925743 (Version 3)
Quarter: 2013Q2

REPORT INFORMATION
  Report Type: Spontaneous
  Country: US (occurrence: US)
  Receive Date: 20121126
  Receipt Date: 20130507
  Transmission Date: 20140414
  Serious: Yes (Other)
  Sender: FDA-Public Use
  Company Number: US-UCBSA-071375

PATIENT
  Sex: Female
  Weight: 83.91 kg

DRUGS (7)
  1. CIMZIA [Suspect]
     Indication: RHEUMATOID ARTHRITIS
     Dosage: SELF INJECTION
     Dates: start: 2012, end: 2012
  2. FOLIC ACID [Concomitant]
     Dosage: UNKNOWN DOSE DAILY
  3. METHOTREXATE [Concomitant]
     Indication: RHEUMATOID ARTHRITIS
  4. NAPROSYN [Concomitant]
     Indication: PAIN
  5. VITAMIN D [Concomitant]
     Dosage: UNKNOWN DOSE DAILY
  6. RITUXAN [Concomitant]
     Dosage: EVERY 8 TO 11 MONTHS
  7. ENBREL [Concomitant]
     Dosage: 25 MG SELF INJECTION
     Dates: end: 2012

REACTIONS (2)
  - Psoriasis [Recovered/Resolved]
  - Throat tightness [Unknown]
